FAERS Safety Report 10354832 (Version 1)
Quarter: 2014Q3

REPORT INFORMATION
  Report Type: Spontaneous
  Country: FR (occurrence: FR)
  Receive Date: 20140731
  Receipt Date: 20140731
  Transmission Date: 20150326
  Serious: Yes (Hospitalization)
  Sender: FDA-Public Use
  Company Number: FR-TEVA-497140ISR

PATIENT
  Age: 83 Year
  Sex: Male

DRUGS (8)
  1. LASILIX 40 MG [Concomitant]
     Active Substance: FUROSEMIDE
     Dosage: 1 TABLET DAILY; LONG-STANDING TREATMENT
     Route: 048
  2. COUMADINE 2 MG [Suspect]
     Active Substance: WARFARIN SODIUM
     Indication: MITRAL VALVE REPLACEMENT
     Dosage: 1 TABLET DAILY; LONG-STANDING TREATMENT
     Route: 048
     Dates: end: 20120320
  3. TUSSIDANE 1.5 MG/ML [Concomitant]
     Active Substance: DEXTROMETHORPHAN HYDROBROMIDE
     Route: 048
     Dates: start: 20120311, end: 20120315
  4. DOLIPRANE 500 MG [Concomitant]
     Dosage: 4 TABLET DAILY;
     Route: 048
     Dates: start: 20120311
  5. ALDACTONE 25 MG [Concomitant]
     Dosage: 25 MILLIGRAM DAILY; LONG-STANDING TREATMENT
     Route: 048
  6. DEBRIDAT [Concomitant]
     Active Substance: TRIMEBUTINE MALEATE
     Dosage: LONG-STANDING TREATMENT
     Route: 048
  7. AZITHROMYCIN [Suspect]
     Active Substance: AZITHROMYCIN ANHYDROUS
     Dosage: 250 MILLIGRAM DAILY;
     Route: 048
     Dates: start: 20120311, end: 20120315
  8. PIVALONE 1 % [Concomitant]
     Active Substance: TIXOCORTOL PIVALATE
     Route: 045
     Dates: start: 20120311, end: 20120315

REACTIONS (2)
  - International normalised ratio increased [Recovered/Resolved]
  - Hyperthermia [Recovered/Resolved]

NARRATIVE: CASE EVENT DATE: 20120320
